FAERS Safety Report 8772348 (Version 2)
Quarter: 2013Q4

REPORT INFORMATION
  Report Type: Spontaneous
  Country: JP (occurrence: JP)
  Receive Date: 20120906
  Receipt Date: 20131108
  Transmission Date: 20140711
  Serious: Yes (Hospitalization)
  Sender: FDA-Public Use
  Company Number: JP-MERCK-2012SP029627

PATIENT
  Age: 68 Year
  Sex: Male
  Weight: 56 kg

DRUGS (19)
  1. TEMODAL [Suspect]
     Indication: GLIOBLASTOMA MULTIFORME
     Dosage: 75 MG/M2, QD
     Route: 048
     Dates: start: 20110617, end: 20110729
  2. TEMODAL [Suspect]
     Dosage: 150 MG/M2, QD
     Route: 048
     Dates: start: 20110830, end: 20110903
  3. TEMODAL [Suspect]
     Dosage: 200 MG/M2, QD
     Route: 048
     Dates: start: 20110926, end: 20110930
  4. TEMODAL [Suspect]
     Dosage: 200 MG/M2, QD
     Route: 048
     Dates: start: 20111024, end: 20111028
  5. TEMODAL [Suspect]
     Dosage: 200 MG/M2, QD
     Route: 048
     Dates: start: 20111121, end: 20111125
  6. TEMODAL [Suspect]
     Dosage: 200 MG/M2, QD
     Route: 048
     Dates: start: 20111219, end: 20111223
  7. TEMODAL [Suspect]
     Dosage: 200 MG/M2, QD
     Route: 048
     Dates: start: 20120116, end: 20120120
  8. TEMODAL [Suspect]
     Dosage: 200 MG/M2, QD
     Route: 048
     Dates: start: 20120214, end: 20120218
  9. TEMODAL [Suspect]
     Dosage: 200 MG/M2, QD
     Route: 048
     Dates: start: 20120313, end: 20120317
  10. TEMODAL [Suspect]
     Dosage: 200 MG/M2, QD
     Route: 048
     Dates: start: 20120410, end: 20120414
  11. TEMODAL [Suspect]
     Dosage: 200 MG/M2, QD
     Route: 048
     Dates: start: 20120508, end: 20120510
  12. TAKEPRON [Concomitant]
     Indication: GASTRITIS PROPHYLAXIS
     Dosage: 15 MG, QD
     Route: 048
     Dates: start: 20110527, end: 20120510
  13. ALEVIATIN [Concomitant]
     Indication: CONVULSION PROPHYLAXIS
     Dosage: 90 MG, TID
     Route: 048
     Dates: start: 20110421, end: 20120510
  14. SENNOSIDES [Concomitant]
     Indication: CONSTIPATION
     Dosage: 12 MG, QD
     Route: 048
     Dates: start: 20110622, end: 20120510
  15. MAGMITT [Concomitant]
     Indication: CONSTIPATION
     Dosage: 330 MG, BID
     Route: 048
     Dates: start: 20110621, end: 20120510
  16. DEPAS [Concomitant]
     Indication: TENSION HEADACHE
     Dosage: 0.5 MG, QD
     Dates: start: 20110628, end: 20120510
  17. GASMOTIN [Concomitant]
     Indication: NAUSEA
     Dosage: 5 MG, TID
     Route: 048
     Dates: start: 20110627, end: 20120510
  18. LOXONIN [Concomitant]
     Indication: HEADACHE
     Dosage: 60 MG, PRN
     Dates: start: 20110527, end: 20120510
  19. NASEA [Concomitant]
     Indication: NAUSEA
     Dosage: 0.1 MG, QD
     Route: 048
     Dates: start: 20120508, end: 20120510

REACTIONS (3)
  - Ileus [Recovering/Resolving]
  - Abdominal adhesions [Recovered/Resolved with Sequelae]
  - Constipation [Recovering/Resolving]
